FAERS Safety Report 25445145 (Version 1)
Quarter: 2025Q2

REPORT INFORMATION
  Report Type: Spontaneous
  Country: US (occurrence: None)
  Receive Date: 20250616
  Receipt Date: 20250616
  Transmission Date: 20250717
  Serious: Yes (Disabling)
  Sender: FDA-CTU
  Company Number: None

PATIENT
  Age: 67 Year
  Sex: Female

DRUGS (4)
  1. ROSUVASTATIN [Suspect]
     Active Substance: ROSUVASTATIN
     Indication: Blood cholesterol increased
     Dosage: OTHER QUANTITY : 1 TABLET(S);?FREQUENCY : DAILY;?
     Route: 048
     Dates: start: 20250101, end: 20250616
  2. HYDROCORTISONE [Suspect]
     Active Substance: HYDROCORTISONE
  3. FLUDROCORTISONE [Suspect]
     Active Substance: FLUDROCORTISONE
  4. SYNTHROID [Suspect]
     Active Substance: LEVOTHYROXINE SODIUM

REACTIONS (3)
  - Fatigue [None]
  - Muscle spasms [None]
  - Epistaxis [None]

NARRATIVE: CASE EVENT DATE: 20250609
